FAERS Safety Report 6124386-5 (Version None)
Quarter: 2009Q1

REPORT INFORMATION
  Report Type: 
  Country: None (occurrence: None)
  Receive Date: 20090318
  Receipt Date: 20090318
  Transmission Date: 20090719
  Serious: Yes (Hospitalization)
  Sender: FDA-Public Use
  Company Number: None

PATIENT
  Age: 24 Year
  Sex: Male

DRUGS (1)
  1. NAROPIN [Suspect]
     Indication: NERVE BLOCK
     Dosage: 150MG X1 PERINEURAL 1
     Route: 053

REACTIONS (1)
  - CONVULSION [None]
